FAERS Safety Report 17571344 (Version 1)
Quarter: 2020Q1

REPORT INFORMATION
  Report Type: Spontaneous
  Country: CN (occurrence: CN)
  Receive Date: 20200323
  Receipt Date: 20200323
  Transmission Date: 20200409
  Serious: Yes (Other)
  Sender: FDA-Public Use
  Company Number: CN-PFIZER INC-2020120943

PATIENT
  Age: 71 Year
  Sex: Male
  Weight: 54 kg

DRUGS (1)
  1. ZYVOX [Suspect]
     Active Substance: LINEZOLID
     Indication: CHRONIC OBSTRUCTIVE PULMONARY DISEASE
     Dosage: 0.6 G, 2X/DAY
     Route: 041
     Dates: start: 20200131, end: 20200207

REACTIONS (1)
  - Rhabdomyolysis [Recovering/Resolving]

NARRATIVE: CASE EVENT DATE: 20200206
